FAERS Safety Report 8811929 (Version 3)
Quarter: 2013Q2

REPORT INFORMATION
  Report Type: Spontaneous
  Country: US (occurrence: US)
  Receive Date: 20120927
  Receipt Date: 20130606
  Transmission Date: 20140414
  Serious: Yes (Death, Hospitalization)
  Sender: FDA-Public Use
  Company Number: US-GILEAD-2012-0061795

PATIENT
  Sex: Female

DRUGS (1)
  1. LETAIRIS [Suspect]
     Indication: PULMONARY HYPERTENSION
     Dosage: 10 MG, UNK
     Route: 048
     Dates: start: 20100601, end: 20120927

REACTIONS (5)
  - Cardiomegaly [Fatal]
  - Pulmonary arterial hypertension [Unknown]
  - Mechanical ventilation [Unknown]
  - Dyspnoea [Unknown]
  - Dyspnoea [Unknown]
